FAERS Safety Report 4613639-5 (Version None)
Quarter: 2005Q1

REPORT INFORMATION
  Report Type: 
  Country: None (occurrence: None)
  Receive Date: 20050318
  Receipt Date: 20050318
  Transmission Date: 20050727
  Serious: Yes (Hospitalization)
  Sender: FDA-Public Use
  Company Number: None

PATIENT
  Sex: Female
  Weight: 80.2867 kg

DRUGS (11)
  1. ADVIL [Suspect]
     Indication: HEADACHE
     Dosage: 2-4 TABS / DAY, STARTED ONE WEEK PRIOR TO ADMISSION
  2. LIPITOR [Concomitant]
  3. TOPROL-XL [Concomitant]
  4. PLAVIX [Concomitant]
  5. ASPIRIN [Concomitant]
  6. FOLGARD [Concomitant]
  7. WELLBUTRIN [Concomitant]
  8. HYZAAR [Concomitant]
  9. PROTONIX [Concomitant]
  10. ADVAIR DISKUS 100/50 [Concomitant]
  11. COLAZAL [Concomitant]

REACTIONS (5)
  - CHEST DISCOMFORT [None]
  - DIZZINESS [None]
  - ERUCTATION [None]
  - HAEMATEMESIS [None]
  - MELAENA [None]
